FAERS Safety Report 15333333 (Version 2)
Quarter: 2018Q3

REPORT INFORMATION
  Report Type: Spontaneous
  Country: US (occurrence: US)
  Receive Date: 20180830
  Receipt Date: 20180901
  Transmission Date: 20181010
  Serious: Yes (Other)
  Sender: FDA-Public Use
  Company Number: US-JNJFOC-20180818015

PATIENT
  Sex: Female
  Weight: 135.63 kg

DRUGS (3)
  1. INVEGA SUSTENNA [Suspect]
     Active Substance: PALIPERIDONE PALMITATE
     Indication: SCHIZOAFFECTIVE DISORDER
     Route: 030
     Dates: start: 201808
  2. INVEGA SUSTENNA [Suspect]
     Active Substance: PALIPERIDONE PALMITATE
     Indication: SCHIZOAFFECTIVE DISORDER
     Dosage: INITIAL DOSE, INITIATED EITHER ON 27?JUL?2018 OR 28?JUL?2018
     Route: 030
     Dates: start: 201807, end: 2018
  3. RISPERDAL [Suspect]
     Active Substance: RISPERIDONE
     Indication: SCHIZOAFFECTIVE DISORDER
     Route: 048
     Dates: start: 201806, end: 201807

REACTIONS (7)
  - Anxiety [Unknown]
  - Drug ineffective [Unknown]
  - Amnesia [Unknown]
  - Disorientation [Unknown]
  - Feeling abnormal [Unknown]
  - Schizoaffective disorder [Unknown]
  - Depressed mood [Unknown]

NARRATIVE: CASE EVENT DATE: 2018
